FAERS Safety Report 5377867-6 (Version None)
Quarter: 2007Q3

REPORT INFORMATION
  Report Type: 
  Country: None (occurrence: None)
  Receive Date: 20070703
  Receipt Date: 20070625
  Transmission Date: 20080115
  Serious: Yes (Other)
  Sender: FDA-Public Use
  Company Number: BR-PFIZER INC-2007053539

PATIENT
  Sex: Male

DRUGS (2)
  1. FRONTAL [Suspect]
     Indication: PANIC DISORDER
     Route: 048
  2. AMPLICTIL [Concomitant]

REACTIONS (1)
  - BLOOD PRESSURE INCREASED [None]
